FAERS Safety Report 7629049-2 (Version None)
Quarter: 2011Q3

REPORT INFORMATION
  Report Type: 
  Country: None (occurrence: None)
  Receive Date: 20110722
  Receipt Date: 20110713
  Transmission Date: 20111222
  Serious: Yes (Hospitalization, Congenital Anomaly, Other)
  Sender: FDA-Public Use
  Company Number: US-PFIZER INC-2008049895

PATIENT
  Sex: Female
  Weight: 2.14 kg

DRUGS (4)
  1. ZOLOFT [Suspect]
     Indication: DEPRESSION
  2. PRENATAL VITAMINS [Concomitant]
     Dosage: NA EVERY NA DAYS
  3. TYLENOL-500 [Concomitant]
     Dosage: AS NEEDED
  4. ZOLOFT [Suspect]
     Indication: ANXIETY
     Dosage: UNK
     Route: 064

REACTIONS (7)
  - FLATULENCE [None]
  - CRYING [None]
  - MATERNAL EXPOSURE DURING PREGNANCY [None]
  - ANAL ATRESIA [None]
  - FEMALE GENITAL TRACT FISTULA [None]
  - INTESTINAL ATRESIA [None]
  - CONSTIPATION [None]
